FAERS Safety Report 25789561 (Version 2)
Quarter: 2025Q4

REPORT INFORMATION
  Report Type: Spontaneous
  Country: JP (occurrence: JP)
  Receive Date: 20250911
  Receipt Date: 20251018
  Transmission Date: 20260118
  Serious: Yes (Congenital Anomaly, Other)
  Sender: CSL BEHRING
  Company Number: JP-BEH-2025217508

PATIENT
  Sex: Male

DRUGS (2)
  1. IDELVION [Suspect]
     Active Substance: COAGULATION FACTOR IX RECOMBINANT HUMAN
     Indication: Product used for unknown indication
     Route: 064
  2. IDELVION [Suspect]
     Active Substance: COAGULATION FACTOR IX RECOMBINANT HUMAN
     Indication: Product used for unknown indication
     Route: 064

REACTIONS (5)
  - Factor IX deficiency [Unknown]
  - Activated partial thromboplastin time prolonged [Unknown]
  - Haemorrhage subcutaneous [Unknown]
  - Skin abrasion [Unknown]
  - Foetal exposure during pregnancy [Unknown]
